FAERS Safety Report 20734334 (Version 1)
Quarter: 2022Q2

REPORT INFORMATION
  Report Type: Spontaneous
  Country: US (occurrence: None)
  Receive Date: 20220420
  Receipt Date: 20220420
  Transmission Date: 20220720
  Serious: Yes (Hospitalization, Disabling)
  Sender: FDA-Public Use
  Company Number: None

PATIENT
  Age: 81 Year
  Sex: Male

DRUGS (7)
  1. PROLIA [Suspect]
     Active Substance: DENOSUMAB
     Indication: Osteoporosis
     Dosage: OTHER FREQUENCY : Q 6 MONTHS;?
     Route: 058
  2. ATORVASTATIN [Concomitant]
  3. CALCIUM SUPPLEMENT [Concomitant]
  4. VITAMIN D [Concomitant]
  5. LIDOCAINE 5% PATCH [Concomitant]
  6. QUETIAPINE [Concomitant]
  7. SERTRALINE [Concomitant]

REACTIONS (1)
  - Urinary tract infection [None]

NARRATIVE: CASE EVENT DATE: 20220201
